FAERS Safety Report 6386820-5 (Version None)
Quarter: 2009Q4

REPORT INFORMATION
  Report Type: 
  Country: None (occurrence: None)
  Receive Date: 20091002
  Receipt Date: 20090924
  Transmission Date: 20100525
  Serious: Yes (Disabling, Other)
  Sender: FDA-Public Use
  Company Number: D0050180A

PATIENT
  Sex: Male
  Weight: 98 kg

DRUGS (15)
  1. AVODART [Suspect]
     Dosage: .5MG PER DAY
     Route: 065
     Dates: start: 20041011, end: 20050131
  2. ALPHA BLOCKER [Suspect]
     Route: 065
     Dates: start: 20030101
  3. BLOPRESS [Suspect]
     Indication: HYPERTENSION
     Dosage: 32MG PER DAY
     Route: 065
     Dates: start: 20040603
  4. REDUCTIL [Suspect]
     Route: 065
     Dates: start: 20040223
  5. OMNIC [Concomitant]
     Route: 065
  6. INSULIN [Concomitant]
     Route: 065
  7. METFORMIN [Concomitant]
     Route: 065
  8. ISMN [Concomitant]
     Route: 065
  9. INEGY [Concomitant]
     Indication: LIPID METABOLISM DISORDER
     Dosage: 10MG TWICE PER DAY
     Route: 065
     Dates: start: 20040929
  10. ASPIRIN [Concomitant]
     Indication: PLATELET AGGREGATION
     Dosage: 100MG PER DAY
     Route: 065
     Dates: start: 20041001
  11. TORSEMIDE [Concomitant]
     Indication: HYPERTENSION
     Route: 065
     Dates: start: 20040205
  12. TORSEMIDE [Concomitant]
     Dosage: 5MG PER DAY
     Route: 048
  13. YOHIMBINE [Concomitant]
     Route: 048
  14. PILOCARPINE HCL [Concomitant]
     Route: 047
  15. LEVITRA [Concomitant]
     Route: 048

REACTIONS (4)
  - DRUG INTERACTION [None]
  - ERECTILE DYSFUNCTION [None]
  - MICTURITION DISORDER [None]
  - NOCTURIA [None]
